FAERS Safety Report 15438884 (Version 1)
Quarter: 2018Q3

REPORT INFORMATION
  Report Type: Spontaneous
  Country: US (occurrence: US)
  Receive Date: 20180928
  Receipt Date: 20180928
  Transmission Date: 20181010
  Serious: Yes (Other)
  Sender: FDA-Public Use
  Company Number: US-HORIZON-BUP-0058-2018

PATIENT
  Age: 25 Year
  Sex: Female

DRUGS (1)
  1. BUPHENYL [Suspect]
     Active Substance: SODIUM PHENYLBUTYRATE
     Indication: UREA CYCLE DISORDER
     Dosage: 20 GRAMS PER DAY

REACTIONS (3)
  - Choking [Unknown]
  - Erosive oesophagitis [Unknown]
  - Blood uric acid increased [Unknown]
